FAERS Safety Report 14723472 (Version 2)
Quarter: 2018Q2

REPORT INFORMATION
  Report Type: Spontaneous
  Country: IT (occurrence: IT)
  Receive Date: 20180405
  Receipt Date: 20180615
  Transmission Date: 20180711
  Serious: Yes (Death)
  Sender: FDA-Public Use
  Company Number: IT-ROCHE-2100948

PATIENT
  Age: 78 Year
  Sex: Male
  Weight: 85 kg

DRUGS (1)
  1. MABTHERA [Suspect]
     Active Substance: RITUXIMAB
     Indication: DIFFUSE LARGE B-CELL LYMPHOMA
     Route: 042
     Dates: start: 20180309, end: 20180309

REACTIONS (5)
  - Dyspnoea [Fatal]
  - Infusion related reaction [Fatal]
  - Tachycardia [Fatal]
  - Hypertensive crisis [Fatal]
  - Acute pulmonary oedema [Fatal]

NARRATIVE: CASE EVENT DATE: 20180309
